FAERS Safety Report 18686365 (Version 2)
Quarter: 2021Q1

REPORT INFORMATION
  Report Type: Report from Study
  Country: None (occurrence: US)
  Receive Date: 20201231
  Receipt Date: 20210128
  Transmission Date: 20210419
  Serious: Yes (Other)
  Sender: FDA-Public Use
  Company Number: US-ABBVIE-20K-163-3708415-00

PATIENT
  Age: 62 Year
  Sex: Female

DRUGS (9)
  1. ALBUTEROL. [Concomitant]
     Active Substance: ALBUTEROL
     Indication: ASTHMA
  2. OLOPATADINE. [Concomitant]
     Active Substance: OLOPATADINE
     Indication: NASAL CONGESTION
  3. HUMIRA [Suspect]
     Active Substance: ADALIMUMAB
     Route: 058
     Dates: start: 20210110
  4. HUMIRA [Suspect]
     Active Substance: ADALIMUMAB
     Indication: RHEUMATOID ARTHRITIS
     Route: 058
     Dates: start: 20181201, end: 20201213
  5. FLUTIFORM K?HALER [Concomitant]
     Indication: ASTHMA
  6. VITAMIN D2 [Concomitant]
     Active Substance: ERGOCALCIFEROL
     Indication: BLOOD 25-HYDROXYCHOLECALCIFEROL DECREASED
  7. LEVOTHYROXINE. [Concomitant]
     Active Substance: LEVOTHYROXINE
     Indication: HYPOTHYROIDISM
  8. POVIDONE [Concomitant]
     Active Substance: POVIDONE
     Indication: DRY EYE
  9. PROTONIX [Concomitant]
     Active Substance: PANTOPRAZOLE SODIUM
     Indication: GASTROOESOPHAGEAL REFLUX DISEASE

REACTIONS (7)
  - Infection [Recovered/Resolved]
  - Facial pain [Not Recovered/Not Resolved]
  - Hordeolum [Recovered/Resolved]
  - Synovial cyst [Recovered/Resolved]
  - Hyperaesthesia teeth [Not Recovered/Not Resolved]
  - Synovial cyst [Recovering/Resolving]
  - Vitamin D decreased [Recovered/Resolved]

NARRATIVE: CASE EVENT DATE: 2019
